FAERS Safety Report 10586757 (Version 3)
Quarter: 2014Q4

REPORT INFORMATION
  Report Type: Spontaneous
  Country: CZ (occurrence: CZ)
  Receive Date: 20141117
  Receipt Date: 20141202
  Transmission Date: 20150529
  Serious: Yes (Death, Other)
  Sender: FDA-Public Use
  Company Number: CZ-GLAXOSMITHKLINE-CZ2014GSK014687

PATIENT
  Age: 78 Year
  Sex: Male

DRUGS (6)
  1. FURON (NOS) [Concomitant]
     Indication: PRODUCT USED FOR UNKNOWN INDICATION
     Dosage: UNK
  2. RAMIPRIL. [Concomitant]
     Active Substance: RAMIPRIL
     Indication: PRODUCT USED FOR UNKNOWN INDICATION
     Dosage: UNK
  3. WARFARIN [Concomitant]
     Active Substance: WARFARIN
     Indication: PRODUCT USED FOR UNKNOWN INDICATION
     Dosage: 5 MG, QD
  4. VOTRIENT [Suspect]
     Active Substance: PAZOPANIB HYDROCHLORIDE
     Indication: RENAL CANCER
     Dosage: UNK
     Route: 048
     Dates: start: 20130418, end: 20130613
  5. PRESID (NOS) [Concomitant]
     Indication: PRODUCT USED FOR UNKNOWN INDICATION
     Dosage: 10 MG, QD
  6. CORSIM [Concomitant]
     Indication: PRODUCT USED FOR UNKNOWN INDICATION
     Dosage: UNK

REACTIONS (8)
  - Cardiac failure [Fatal]
  - Pleural effusion [Unknown]
  - Tachycardia [Unknown]
  - Osteolysis [Unknown]
  - Dyspnoea [Unknown]
  - Left atrial dilatation [Unknown]
  - Circulatory collapse [Fatal]
  - Atrial fibrillation [Unknown]

NARRATIVE: CASE EVENT DATE: 201306
